FAERS Safety Report 10836911 (Version 2)
Quarter: 2015Q1

REPORT INFORMATION
  Report Type: Spontaneous
  Country: CH (occurrence: None)
  Receive Date: 20150218
  Receipt Date: 20150224
  Transmission Date: 20150721
  Serious: Yes (Death, Hospitalization, Other)
  Sender: FDA-Public Use
  Company Number: 20150075

PATIENT
  Sex: Female
  Weight: 1.29 kg

DRUGS (15)
  1. VENOFER [Suspect]
     Active Substance: IRON SUCROSE
     Indication: ANAEMIA
     Route: 064
     Dates: start: 20130120, end: 20141118
  2. DOPEGYT (METHYLDOPA) [Concomitant]
  3. VENOFER [Suspect]
     Active Substance: IRON SUCROSE
     Indication: HAEMODIALYSIS
     Route: 064
     Dates: start: 20130120, end: 20141118
  4. EUTHYROX  (LEVOTHYROXINE) [Concomitant]
  5. ZOLAFREN (OLANZAPINE) [Concomitant]
  6. HELICID (OMEPRAZOLE) [Concomitant]
  7. ACIDUM FOLICUM (FOLIC ACID) [Concomitant]
  8. TARDYFERON (FERROUS SULFATE) [Concomitant]
     Active Substance: FERROUS SULFATE\FERROUS SULFATE, DRIED
  9. CARDURA XL (DOXAZODIN MESILATE) [Concomitant]
  10. DEPAKINE CHRONO (CALPROIC) [Concomitant]
  11. NEBILET (NEBIVOLOL HYDROCHLORIDE, NEBIVOLOL) [Concomitant]
  12. ALFADIOL (ALFACALCIDOL, ALPHADIOLUM) [Concomitant]
  13. LEVOTHYROXINE [Concomitant]
     Active Substance: LEVOTHYROXINE
  14. AGEN (AMLODIPINE BESILATE/AMLODIPINE) [Concomitant]
  15. PYRIDOXINE HYDROCHLORIDE  TRANSPLACENTAL [Concomitant]

REACTIONS (8)
  - Respiratory failure [None]
  - Necrotising colitis [None]
  - Maternal drugs affecting foetus [None]
  - Immature respiratory system [None]
  - Death neonatal [None]
  - Low birth weight baby [None]
  - Caesarean section [None]
  - Premature baby [None]

NARRATIVE: CASE EVENT DATE: 20141121
